FAERS Safety Report 4445817-2 (Version None)
Quarter: 2004Q3

REPORT INFORMATION
  Report Type: 
  Country: None (occurrence: None)
  Receive Date: 20040903
  Receipt Date: 20040824
  Transmission Date: 20050211
  Serious: Yes (Hospitalization)
  Sender: FDA-Public Use
  Company Number: 2004-BP-07355AU

PATIENT
  Age: 79 Year
  Sex: Female

DRUGS (4)
  1. MOBIC [Suspect]
     Indication: RHEUMATOID ARTHRITIS
     Dosage: PO
     Route: 048
  2. ISORDIL (ISOSORBIDE DINITRATE) (TA) [Concomitant]
  3. LIPEX (SIMVASTATIN) (TA) [Concomitant]
  4. MINIPRESS (PRAZOSIN HYDROCHLORIDE) (TA) [Concomitant]

REACTIONS (3)
  - DIZZINESS [None]
  - GASTROINTESTINAL HAEMORRHAGE [None]
  - RECTAL HAEMORRHAGE [None]
